FAERS Safety Report 18120185 (Version 1)
Quarter: 2020Q3

REPORT INFORMATION
  Report Type: Spontaneous
  Country: US (occurrence: US)
  Receive Date: 20200806
  Receipt Date: 20200806
  Transmission Date: 20201103
  Serious: No
  Sender: FDA-Public Use
  Company Number: US-SA-2020SA204337

PATIENT

DRUGS (16)
  1. SODIUM CHLORIDE. [Concomitant]
     Active Substance: SODIUM CHLORIDE
  2. EZETIMIBE + SIMVASTATIN [Concomitant]
     Active Substance: EZETIMIBE\SIMVASTATIN
  3. FABRAZYME [Suspect]
     Active Substance: AGALSIDASE BETA
     Indication: FABRY^S DISEASE
  4. WARFARIN [Concomitant]
     Active Substance: WARFARIN
  5. MYFORTIC [Concomitant]
     Active Substance: MYCOPHENOLATE SODIUM
  6. AMLODIPINE [Concomitant]
     Active Substance: AMLODIPINE BESYLATE
  7. STERILE WATER [Concomitant]
     Active Substance: WATER
  8. HEPARIN [Concomitant]
     Active Substance: HEPARIN SODIUM
  9. LISINOPRIL. [Concomitant]
     Active Substance: LISINOPRIL
  10. NULOJIX [Concomitant]
     Active Substance: BELATACEPT
  11. NORMAL SALINE [Concomitant]
     Active Substance: SODIUM CHLORIDE
  12. FABRAZYME [Suspect]
     Active Substance: AGALSIDASE BETA
     Indication: LIPIDOSIS
     Dosage: 85 MG, QOW
     Route: 042
     Dates: start: 20040902
  13. TYLENOL [Concomitant]
     Active Substance: ACETAMINOPHEN
  14. DOXERCALCIFEROL. [Concomitant]
     Active Substance: DOXERCALCIFEROL
  15. PREDNISONE. [Concomitant]
     Active Substance: PREDNISONE
  16. EPINEPHRINE. [Concomitant]
     Active Substance: EPINEPHRINE

REACTIONS (2)
  - Localised infection [Unknown]
  - Product use in unapproved indication [Unknown]

NARRATIVE: CASE EVENT DATE: 20040902
